FAERS Safety Report 4506659-2 (Version None)
Quarter: 2004Q4

REPORT INFORMATION
  Report Type: 
  Country: None (occurrence: None)
  Receive Date: 20041122
  Receipt Date: 20030605
  Transmission Date: 20050328
  Serious: Yes (Hospitalization, Disabling, Other)
  Sender: FDA-Public Use
  Company Number: US-MERCK-0306USA00809

PATIENT
  Age: 37 Year
  Sex: Male
  Weight: 71 kg

DRUGS (1)
  1. VIOXX [Suspect]
     Route: 048
     Dates: start: 19990101

REACTIONS (12)
  - ADVERSE EVENT [None]
  - ARTHRITIS [None]
  - BLADDER NECK OBSTRUCTION [None]
  - CYSTITIS [None]
  - DERMATITIS CONTACT [None]
  - DYSURIA [None]
  - GASTROOESOPHAGEAL REFLUX DISEASE [None]
  - PHARYNGOLARYNGEAL PAIN [None]
  - POLYTRAUMATISM [None]
  - SINUSITIS [None]
  - TESTICULAR DISORDER [None]
  - TESTICULAR TORSION [None]
